FAERS Safety Report 18748404 (Version 2)
Quarter: 2021Q1

REPORT INFORMATION
  Report Type: Spontaneous
  Country: CN (occurrence: CN)
  Receive Date: 20210115
  Receipt Date: 20210311
  Transmission Date: 20210419
  Serious: Yes (Other)
  Sender: FDA-Public Use
  Company Number: CN-PFIZER INC-2021008914

PATIENT
  Age: 17 Year
  Sex: Male

DRUGS (1)
  1. MEDROL [Suspect]
     Active Substance: METHYLPREDNISOLONE
     Indication: NEPHROTIC SYNDROME
     Dosage: 8 MG, 1X/DAY
     Route: 048
     Dates: start: 20100101

REACTIONS (2)
  - Disease recurrence [Unknown]
  - Nephrotic syndrome [Unknown]

NARRATIVE: CASE EVENT DATE: 20201216
